FAERS Safety Report 23314261 (Version 1)
Quarter: 2023Q4

REPORT INFORMATION
  Report Type: Report from Study
  Country: US (occurrence: US)
  Receive Date: 20231219
  Receipt Date: 20231219
  Transmission Date: 20240110
  Serious: Yes (Other)
  Sender: FDA-Public Use
  Company Number: US-UCBSA-2023058970

PATIENT
  Age: 81 Year
  Sex: Female

DRUGS (1)
  1. CERTOLIZUMAB PEGOL [Suspect]
     Active Substance: CERTOLIZUMAB PEGOL
     Indication: Rheumatoid arthritis
     Dosage: UNK

REACTIONS (4)
  - Cataract [Unknown]
  - Cataract operation [Unknown]
  - Limb operation [Unknown]
  - Visual impairment [Unknown]

NARRATIVE: CASE EVENT DATE: 20231211
